FAERS Safety Report 15682722 (Version 2)
Quarter: 2019Q1

REPORT INFORMATION
  Report Type: Spontaneous
  Country: JP (occurrence: JP)
  Receive Date: 20181203
  Receipt Date: 20190206
  Transmission Date: 20190417
  Serious: Yes (Hospitalization, Other)
  Sender: FDA-Public Use
  Company Number: JP-ALXN-A201815379AA

PATIENT
  Age: 26 Day

DRUGS (1)
  1. STRENSIQ [Suspect]
     Active Substance: ASFOTASE ALFA
     Indication: HYPOPHOSPHATASIA
     Dosage: UNK
     Route: 058
     Dates: start: 20181019

REACTIONS (2)
  - Tracheal ulcer [Unknown]
  - Tracheomalacia [Not Recovered/Not Resolved]

NARRATIVE: CASE EVENT DATE: 20181114
